FAERS Safety Report 9238265 (Version 1)
Quarter: 2013Q2

REPORT INFORMATION
  Report Type: Spontaneous
  Country: GB (occurrence: None)
  Receive Date: 20130416
  Receipt Date: 20130416
  Transmission Date: 20140414
  Serious: Yes (Disabling, Other)
  Sender: FDA-Public Use
  Company Number: FK201301148

PATIENT
  Age: 62 Year
  Sex: Female
  Weight: 68.03 kg

DRUGS (5)
  1. ANASTROZOLE [Suspect]
     Indication: BREAST CANCER
     Route: 048
     Dates: start: 20110826, end: 20130310
  2. ADCAL-D3 (LEKOVITCA) [Concomitant]
  3. CLOPIDOGREL (CLOPIDOGREL) [Concomitant]
  4. LETROZOLE (LETROZOLE) [Concomitant]
  5. SIMVASTATIN (SIMVASTATIN) [Concomitant]

REACTIONS (5)
  - Vertigo positional [None]
  - Carpal tunnel syndrome [None]
  - Osteoporosis [None]
  - Temporomandibular joint syndrome [None]
  - Trigger finger [None]
